FAERS Safety Report 6177658-2 (Version None)
Quarter: 2009Q2

REPORT INFORMATION
  Report Type: 
  Country: None (occurrence: None)
  Receive Date: 20090501
  Receipt Date: 20090501
  Transmission Date: 20091009
  Serious: Yes (Disabling)
  Sender: FDA-Public Use
  Company Number: None

PATIENT
  Sex: Male

DRUGS (16)
  1. GEMCITABINE [Suspect]
     Indication: PANCREATIC CARCINOMA
     Dosage: 1000MG/M2 DAY 1 IV
     Route: 042
     Dates: start: 20090209, end: 20090406
  2. CAPECITABINE 150 MG AND 500 MG ROCHE [Suspect]
     Indication: PANCREATIC CARCINOMA
     Dosage: 1250MG/M2 DAYS 1-7 PO
     Route: 048
     Dates: start: 20090209, end: 20090413
  3. OXYCONTIN [Concomitant]
  4. PROTONIX [Concomitant]
  5. COZAAR [Concomitant]
  6. LOPRESSOR [Concomitant]
  7. NORVASC [Concomitant]
  8. ASPIRIN [Concomitant]
  9. ZOCOR [Concomitant]
  10. ATIVAN [Concomitant]
  11. COMPAZINE [Concomitant]
  12. PANGESLYME MT16 [Concomitant]
  13. PERCOCET [Concomitant]
  14. ASCORBIC ACID [Concomitant]
  15. AMBIEN [Concomitant]
  16. ONDASETRON [Concomitant]

REACTIONS (4)
  - PAIN IN EXTREMITY [None]
  - PALMAR-PLANTAR ERYTHRODYSAESTHESIA SYNDROME [None]
  - SKIN CHAPPED [None]
  - SKIN EXFOLIATION [None]
